FAERS Safety Report 8823362 (Version 1)
Quarter: 2012Q4

REPORT INFORMATION
  Report Type: 
  Country: US (occurrence: US)
  Receive Date: 20121003
  Receipt Date: 20121003
  Transmission Date: 20130627
  Serious: No
  Sender: FDA-Public Use
  Company Number: US-BAYER-2012-093205

PATIENT
  Age: 51 Year
  Sex: Male
  Weight: 111.11 kg

DRUGS (5)
  1. RID 1-2-3 SYSTEM [Suspect]
     Indication: LICE INFESTATION
     Dosage: UNK
     Route: 061
     Dates: end: 201208
  2. ALEVE CAPLET/TABLET,MIDOL EXTENDED RELIEF CAPLET [Suspect]
     Indication: TOOTHACHE
     Dosage: 1 DF, QD
     Route: 048
     Dates: start: 20120601, end: 20120814
  3. ALEVE CAPLET/TABLET,MIDOL EXTENDED RELIEF CAPLET [Suspect]
     Indication: TOOTHACHE
     Dosage: 1 DF, OM
     Route: 048
     Dates: start: 20120821
  4. MULTI VITAMIN [Concomitant]
  5. CENTRUM SILVER [Concomitant]

REACTIONS (6)
  - Pruritus genital [Recovered/Resolved]
  - Pruritus genital [Not Recovered/Not Resolved]
  - Face oedema [Not Recovered/Not Resolved]
  - Pruritus [Not Recovered/Not Resolved]
  - Pruritus [Recovered/Resolved]
  - No adverse event [None]
